FAERS Safety Report 20941115 (Version 2)
Quarter: 2022Q4

REPORT INFORMATION
  Report Type: Spontaneous
  Country: US (occurrence: US)
  Receive Date: 20220609
  Receipt Date: 20221006
  Transmission Date: 20230112
  Serious: No
  Sender: FDA-Public Use
  Company Number: US-BEH-2022146285

PATIENT
  Sex: Female

DRUGS (3)
  1. HIZENTRA [Suspect]
     Active Substance: HUMAN IMMUNOGLOBULIN G
     Indication: Immunodeficiency
     Dosage: 6 GRAM, QW
     Route: 058
     Dates: start: 20220124
  2. MOTRIN [Concomitant]
     Active Substance: IBUPROFEN
  3. OCRELIZUMAB [Concomitant]
     Active Substance: OCRELIZUMAB

REACTIONS (3)
  - Headache [Unknown]
  - Diarrhoea [Unknown]
  - Fatigue [Unknown]
